FAERS Safety Report 10457152 (Version 1)
Quarter: 2014Q3

REPORT INFORMATION
  Report Type: Spontaneous
  Country: US (occurrence: None)
  Receive Date: 20140915
  Receipt Date: 20140915
  Transmission Date: 20150326
  Serious: Yes (Life-Threatening, Hospitalization)
  Sender: FDA-Public Use
  Company Number: None

PATIENT
  Age: 71 Year
  Sex: Female
  Weight: 63.5 kg

DRUGS (1)
  1. PEG 3350 [Suspect]
     Active Substance: POLYETHYLENE GLYCOL 3350
     Indication: COLONOSCOPY
     Dosage: 1 BOTTLE, REHDRATED, 2 1/4 C, EV  15 MIN
     Dates: start: 20140902, end: 20140902

REACTIONS (7)
  - Nausea [None]
  - Asthenia [None]
  - Dehydration [None]
  - Chills [None]
  - Electrolyte imbalance [None]
  - Tremor [None]
  - Vomiting [None]

NARRATIVE: CASE EVENT DATE: 20140902
